FAERS Safety Report 4728341-9 (Version None)
Quarter: 2005Q3

REPORT INFORMATION
  Report Type: 
  Country: None (occurrence: None)
  Receive Date: 20050727
  Receipt Date: 20050718
  Transmission Date: 20060218
  Serious: Yes (Hospitalization)
  Sender: FDA-Public Use
  Company Number: 2005US000952

PATIENT
  Age: 36 Year
  Sex: Male

DRUGS (15)
  1. PROGRAF [Suspect]
     Indication: PROPHYLAXIS AGAINST TRANSPLANT REJECTION
     Dosage: 6.00 MG, BID, ORAL
     Route: 048
     Dates: start: 20050511
  2. MYCOPHENOLATE MOFETIL (MYCOPHENOLATE MOFETIL) [Suspect]
     Indication: PROPHYLAXIS AGAINST TRANSPLANT REJECTION
     Dosage: 1000.00 MG, BID, ORAL
     Route: 048
     Dates: start: 20050507
  3. PREDNISONE (PRENISONE) [Suspect]
     Indication: PROPHYLAXIS AGAINST TRANSPLANT REJECTION
     Dosage: SEE IMAGE
     Route: 048
     Dates: start: 20050705
  4. VALCYTE [Concomitant]
  5. COLACE (DOCUSATE SODIUM) [Concomitant]
  6. METAPRAMINE (METAPRAMINE) [Concomitant]
  7. SEPTRA [Concomitant]
  8. METOPROLOL TARTRATE [Concomitant]
  9. CATAPRES [Concomitant]
  10. OMEPRAZOLE [Concomitant]
  11. TORADOL [Concomitant]
  12. VIBEDEN (HYDROXOCOBALAMIN) [Concomitant]
  13. PREVACID [Concomitant]
  14. DIFLUCAN [Concomitant]
  15. CLONIDINE [Concomitant]

REACTIONS (2)
  - BLOOD CREATININE INCREASED [None]
  - PERICARDITIS [None]
